FAERS Safety Report 5500758-4 (Version None)
Quarter: 2007Q4

REPORT INFORMATION
  Report Type: 
  Country: None (occurrence: None)
  Receive Date: 20071023
  Receipt Date: 20070522
  Transmission Date: 20080405
  Serious: Yes (Other)
  Sender: FDA-Public Use
  Company Number: 4717

PATIENT
  Age: 19 Year
  Sex: Male
  Weight: 99.7913 kg

DRUGS (2)
  1. LORATADINE [Suspect]
     Indication: SEASONAL ALLERGY
     Dosage: 4 TABLETS IN 10 HOURS
     Dates: start: 20070512
  2. BENADRYL [Concomitant]

REACTIONS (2)
  - ANAPHYLACTIC REACTION [None]
  - RESPIRATORY ARREST [None]
